FAERS Safety Report 15474346 (Version 2)
Quarter: 2018Q4

REPORT INFORMATION
  Report Type: Spontaneous
  Country: BR (occurrence: BR)
  Receive Date: 20181008
  Receipt Date: 20181018
  Transmission Date: 20190205
  Serious: Yes (Hospitalization, Other)
  Sender: FDA-Public Use
  Company Number: BR-009507513-1810BRA000468

PATIENT
  Age: 35 Year
  Sex: Female
  Weight: 66 kg

DRUGS (3)
  1. PURAN [Concomitant]
     Active Substance: LEVOTHYROXINE SODIUM
     Indication: HYPOTHYROIDISM
     Dosage: 1 TABLET, QD
     Route: 048
     Dates: start: 2003
  2. NUVARING [Suspect]
     Active Substance: ETHINYL ESTRADIOL\ETONOGESTREL
     Dosage: 1 DF, CYCLICAL (EVERY 4 WEEKS; NO INFORMATION IF THE PATIENT USUALLY PERFORMS A FREE WEEK PERIOD)
     Route: 067
     Dates: start: 201808, end: 201808
  3. NUVARING [Suspect]
     Active Substance: ETHINYL ESTRADIOL\ETONOGESTREL
     Indication: CONTRACEPTION
     Dosage: 1 DF, CYCLICAL (EVERY 4 WEEKS; NO INFORMATION IF THE PATIENT USUALLY PERFORMS A FREE WEEK PERIOD)
     Route: 067
     Dates: start: 2010, end: 201805

REACTIONS (5)
  - Inappropriate schedule of product administration [Unknown]
  - Cervical conisation [Recovered/Resolved]
  - Withdrawal bleed [Not Recovered/Not Resolved]
  - Incorrect product administration duration [Unknown]
  - Incorrect product administration duration [Unknown]

NARRATIVE: CASE EVENT DATE: 2018
